FAERS Safety Report 4567109-3 (Version None)
Quarter: 2005Q1

REPORT INFORMATION
  Report Type: 
  Country: None (occurrence: None)
  Receive Date: 20050201
  Receipt Date: 20050121
  Transmission Date: 20050727
  Serious: Yes (Hospitalization)
  Sender: FDA-Public Use
  Company Number: US-JNJFOC-20050106367

PATIENT
  Age: 58 Day
  Sex: Female
  Weight: 4.9 kg

DRUGS (2)
  1. ACETAMINOPHEN [Suspect]
     Route: 049
  2. ACETAMINOPHEN [Suspect]
     Dosage: 16.32 MG/KG/DOSE OR 97.9 MG/D
     Route: 049

REACTIONS (21)
  - ACCIDENTAL OVERDOSE [None]
  - ACTIVATED PARTIAL THROMBOPLASTIN TIME PROLONGED [None]
  - ALANINE AMINOTRANSFERASE INCREASED [None]
  - ASPARTATE AMINOTRANSFERASE INCREASED [None]
  - BLOOD BICARBONATE DECREASED [None]
  - BLOOD GLUCOSE DECREASED [None]
  - CARDIAC MURMUR [None]
  - DEHYDRATION [None]
  - DRUG TOXICITY [None]
  - HAEMOGLOBIN DECREASED [None]
  - HEPATOMEGALY [None]
  - HEPATOTOXICITY [None]
  - HYPOTONIA [None]
  - INTERNATIONAL NORMALISED RATIO [None]
  - INTERNATIONAL NORMALISED RATIO INCREASED [None]
  - LISTLESS [None]
  - NEUTROPHIL COUNT INCREASED [None]
  - PALLOR [None]
  - PLATELET COUNT DECREASED [None]
  - PROTHROMBIN TIME PROLONGED [None]
  - WHITE BLOOD CELL COUNT INCREASED [None]
